FAERS Safety Report 7576663-9 (Version None)
Quarter: 2011Q2

REPORT INFORMATION
  Report Type: 
  Country: None (occurrence: None)
  Receive Date: 20110628
  Receipt Date: 20110613
  Transmission Date: 20111010
  Serious: Yes (Other)
  Sender: FDA-Public Use
  Company Number: US-BAYER-2011-008235

PATIENT
  Sex: Female
  Weight: 81.633 kg

DRUGS (6)
  1. YAZ [Suspect]
     Indication: ACNE
  2. XOPENEX [Concomitant]
  3. YASMIN [Suspect]
     Indication: ACNE
  4. SINGULAIR [Concomitant]
     Dosage: 10 MG, UNK
     Route: 048
  5. DICLOFEN [Concomitant]
     Dosage: 50 MG, UNK
  6. CLARITIN [Concomitant]
     Dosage: 10 MG, UNK

REACTIONS (4)
  - PAIN [None]
  - INJURY [None]
  - CHOLECYSTITIS CHRONIC [None]
  - GALLBLADDER DISORDER [None]
